FAERS Safety Report 5484036-8 (Version None)
Quarter: 2007Q4

REPORT INFORMATION
  Report Type: 
  Country: None (occurrence: None)
  Receive Date: 20071012
  Receipt Date: 20071002
  Transmission Date: 20080405
  Serious: Yes (Other)
  Sender: FDA-Public Use
  Company Number: US-ROCHE-519536

PATIENT
  Age: 76 Year
  Sex: Female
  Weight: 49.9 kg

DRUGS (1)
  1. BONIVA [Suspect]
     Indication: OSTEOARTHRITIS
     Route: 042
     Dates: start: 20060927, end: 20061003

REACTIONS (3)
  - INJECTION SITE ERYTHEMA [None]
  - OEDEMA [None]
  - PHLEBITIS [None]
